FAERS Safety Report 6321825-1 (Version None)
Quarter: 2009Q3

REPORT INFORMATION
  Report Type: 
  Country: None (occurrence: None)
  Receive Date: 20090824
  Receipt Date: 20090813
  Transmission Date: 20100115
  Serious: Yes (Hospitalization)
  Sender: FDA-Public Use
  Company Number: FR-JNJFOC-20071203556

PATIENT
  Age: 51 Year
  Sex: Male

DRUGS (6)
  1. REMICADE [Suspect]
     Route: 042
  2. REMICADE [Suspect]
     Indication: ANKYLOSING SPONDYLITIS
     Route: 042
  3. METHOTREXATE [Suspect]
     Indication: ANKYLOSING SPONDYLITIS
  4. ENBREL [Suspect]
     Indication: ANKYLOSING SPONDYLITIS
     Route: 058
  5. COLCHICINE [Concomitant]
  6. SOLU-PRED [Concomitant]

REACTIONS (2)
  - LUPUS-LIKE SYNDROME [None]
  - PERICARDITIS [None]
